FAERS Safety Report 5079497-2 (Version None)
Quarter: 2006Q3

REPORT INFORMATION
  Report Type: 
  Country: None (occurrence: None)
  Receive Date: 20060814
  Receipt Date: 20050804
  Transmission Date: 20061208
  Serious: No
  Sender: FDA-Public Use
  Company Number: US-BRISTOL-MYERS SQUIBB COMPANY-13064183

PATIENT
  Sex: Female

DRUGS (1)
  1. GLUCOVANCE [Suspect]
     Route: 048

REACTIONS (1)
  - HYPOGLYCAEMIA [None]
